FAERS Safety Report 16180229 (Version 1)
Quarter: 2019Q2

REPORT INFORMATION
  Report Type: Spontaneous
  Country: US (occurrence: US)
  Receive Date: 20190410
  Receipt Date: 20190410
  Transmission Date: 20190711
  Serious: No
  Sender: FDA-Public Use
  Company Number: US-AMNEAL PHARMACEUTICALS-2019AMN00112

PATIENT
  Sex: Male

DRUGS (1)
  1. VIGABATRIN. [Suspect]
     Active Substance: VIGABATRIN
     Indication: EPILEPSY
     Dosage: 1250 MG, 2X/DAY, DISSOLVE 3 PACKETS IN 30 MLS OF WATER AND GIVE/TAKE 25 MLS (1,250 MG)
     Route: 048

REACTIONS (1)
  - Malaise [Unknown]
